FAERS Safety Report 5432755-1 (Version None)
Quarter: 2007Q3

REPORT INFORMATION
  Report Type: 
  Country: None (occurrence: None)
  Receive Date: 20070831
  Receipt Date: 20070822
  Transmission Date: 20080115
  Serious: Yes (Other)
  Sender: FDA-Public Use
  Company Number: GB-JNJFOC-20070703839

PATIENT
  Sex: Female

DRUGS (3)
  1. DURAGESIC-100 [Suspect]
     Dosage: 5X100UG/HR PATCHES
     Route: 062
  2. DURAGESIC-100 [Suspect]
     Indication: DRUG USE FOR UNKNOWN INDICATION
     Route: 062
  3. PREGABALIN [Concomitant]
     Indication: NEURALGIA
     Route: 065

REACTIONS (3)
  - BUNDLE BRANCH BLOCK [None]
  - PALPITATIONS [None]
  - PATHOLOGICAL FRACTURE [None]
